FAERS Safety Report 9318993 (Version 1)
Quarter: 2013Q2

REPORT INFORMATION
  Report Type: Report from Study
  Country: JP (occurrence: JP)
  Receive Date: 20130530
  Receipt Date: 20130530
  Transmission Date: 20140414
  Serious: Yes (Death)
  Sender: FDA-Public Use
  Company Number: JP-SANOFI-AVENTIS-2013SA053529

PATIENT
  Age: 53 Year
  Sex: Male

DRUGS (2)
  1. TAXOTERE [Suspect]
     Indication: PROSTATE CANCER
     Dosage: CYCLE 1-4
     Route: 041
     Dates: start: 20120412
  2. TAXOTERE [Suspect]
     Indication: PROSTATE CANCER
     Route: 041
     Dates: end: 201208

REACTIONS (2)
  - Neutropenia [Fatal]
  - Sepsis [Fatal]
